FAERS Safety Report 5089822-4 (Version None)
Quarter: 2006Q3

REPORT INFORMATION
  Report Type: 
  Country: None (occurrence: None)
  Receive Date: 20060825
  Receipt Date: 20060810
  Transmission Date: 20061208
  Serious: Yes (Other)
  Sender: FDA-Public Use
  Company Number: PHEH2006US10260

PATIENT
  Age: 46 Year
  Sex: Female

DRUGS (9)
  1. ZOMETA [Suspect]
     Indication: MULTIPLE MYELOMA
     Dosage: 4 MG, QMO
     Dates: start: 20060706
  2. MS CONTIN [Concomitant]
  3. DEXAMETHASONE [Concomitant]
  4. BISACODYL [Concomitant]
  5. FAMOTIDINE [Concomitant]
  6. FENTANYL [Concomitant]
  7. PHENERGAN HCL [Concomitant]
  8. BACLOFEN [Concomitant]
  9. NAPROXEN [Concomitant]

REACTIONS (4)
  - FACIAL PALSY [None]
  - FACIAL PARESIS [None]
  - HAEMATOCRIT DECREASED [None]
  - HAEMOGLOBIN DECREASED [None]
